FAERS Safety Report 24464143 (Version 2)
Quarter: 2024Q4

REPORT INFORMATION
  Report Type: Spontaneous
  Country: BR (occurrence: BR)
  Receive Date: 20241018
  Receipt Date: 20241024
  Transmission Date: 20250115
  Serious: No
  Sender: SANDOZ
  Company Number: BR-SANDOZ-SDZ2024BR087821

PATIENT
  Sex: Male

DRUGS (1)
  1. OMNITROPE [Suspect]
     Active Substance: SOMATROPIN
     Indication: Product used for unknown indication
     Dosage: UNK
     Route: 065

REACTIONS (2)
  - Poor quality device used [Unknown]
  - Wrong device used [Unknown]
